FAERS Safety Report 25964756 (Version 1)
Quarter: 2025Q4

REPORT INFORMATION
  Report Type: Spontaneous
  Country: BR (occurrence: BR)
  Receive Date: 20251027
  Receipt Date: 20251027
  Transmission Date: 20260118
  Serious: Yes (Other)
  Sender: BRISTOL-MYERS SQUIBB COMPANY
  Company Number: BR-BRISTOL-MYERS SQUIBB COMPANY-2025-145235

PATIENT
  Age: 36 Year
  Sex: Male

DRUGS (4)
  1. THALIDOMIDE [Suspect]
     Active Substance: THALIDOMIDE
     Indication: Type 2 lepra reaction
     Dosage: 100-400MG/DAY
  2. PREDNISONE [Suspect]
     Active Substance: PREDNISONE
     Indication: Type 2 lepra reaction
     Route: 042
  3. PREDNISOLONE [Suspect]
     Active Substance: PREDNISOLONE
     Indication: Type 2 lepra reaction
     Route: 042
  4. BETAMETHASONE [Suspect]
     Active Substance: BETAMETHASONE
     Indication: Type 2 lepra reaction
     Route: 042

REACTIONS (3)
  - Obesity [Unknown]
  - Osteoporosis [Unknown]
  - Pathological fracture [Unknown]
